FAERS Safety Report 7503984-8 (Version None)
Quarter: 2011Q2

REPORT INFORMATION
  Report Type: 
  Country: None (occurrence: None)
  Receive Date: 20110525
  Receipt Date: 20110516
  Transmission Date: 20111010
  Serious: Yes (Other)
  Sender: FDA-Public Use
  Company Number: US-CEPHALON-US021526

PATIENT
  Sex: Male
  Weight: 84 kg

DRUGS (9)
  1. PERCOCET [Concomitant]
     Indication: BACK PAIN
     Dosage: 7.5/325MG PRN
     Route: 048
     Dates: start: 19930101
  2. ACTIQ [Suspect]
     Route: 002
     Dates: start: 20061201
  3. MORPHINE [Concomitant]
  4. METHADOSE [Concomitant]
     Indication: WEANING FAILURE
     Route: 048
  5. EFFEXOR [Concomitant]
     Indication: DEPRESSION
     Route: 048
     Dates: start: 20060101
  6. TORSEMIDE [Concomitant]
     Indication: DIURETIC THERAPY
     Route: 048
  7. ACTIQ [Suspect]
     Indication: BACK PAIN
     Dosage: 14400-16800UG QD
     Route: 002
     Dates: start: 20040101, end: 20061201
  8. WELLBUTRIN SR [Concomitant]
     Indication: DEPRESSION
     Route: 048
  9. WELLBUTRIN SR [Concomitant]
     Indication: DEPRESSION
     Route: 048

REACTIONS (16)
  - CONFUSIONAL STATE [None]
  - NECK PAIN [None]
  - SKIN LESION [None]
  - CONSTIPATION [None]
  - INSOMNIA [None]
  - HEADACHE [None]
  - DIPLOPIA [None]
  - OEDEMA PERIPHERAL [None]
  - DEEP VEIN THROMBOSIS [None]
  - VERTIGO [None]
  - DRUG TOLERANCE [None]
  - PANIC ATTACK [None]
  - INTENTIONAL DRUG MISUSE [None]
  - ANXIETY [None]
  - TOOTH LOSS [None]
  - HYPERHIDROSIS [None]
